FAERS Safety Report 7798078-0 (Version None)
Quarter: 2011Q4

REPORT INFORMATION
  Report Type: 
  Country: None (occurrence: None)
  Receive Date: 20111005
  Receipt Date: 20110926
  Transmission Date: 20120403
  Serious: Yes (Hospitalization)
  Sender: FDA-Public Use
  Company Number: US-NOVOPROD-330851

PATIENT
  Age: 54 Year
  Sex: Female
  Weight: 99.32 kg

DRUGS (6)
  1. JANUVIA [Concomitant]
     Indication: TYPE 2 DIABETES MELLITUS
     Dosage: UNKNOWN
  2. VICTOZA [Suspect]
     Dosage: 1.8 MG, QD
     Route: 058
     Dates: start: 20100601, end: 20110610
  3. VICTOZA [Suspect]
     Indication: WEIGHT DECREASED
     Dosage: 1.2 MG, QD
     Route: 058
  4. LANTUS [Concomitant]
     Indication: TYPE 2 DIABETES MELLITUS
     Dosage: UNKNOWN
  5. NOVOLOG [Concomitant]
     Indication: TYPE 2 DIABETES MELLITUS
     Dosage: UNKNOWN
  6. VICTOZA [Suspect]
     Indication: TYPE 2 DIABETES MELLITUS
     Dosage: 0.6 MG, QD
     Route: 058

REACTIONS (1)
  - PANCREATITIS [None]
